FAERS Safety Report 19956694 (Version 1)
Quarter: 2021Q4

REPORT INFORMATION
  Report Type: Spontaneous
  Country: FR (occurrence: FR)
  Receive Date: 20211014
  Receipt Date: 20211014
  Transmission Date: 20220303
  Serious: Yes (Other)
  Sender: FDA-Public Use
  Company Number: FR-ABBVIE-21K-056-4116170-00

PATIENT
  Age: 80 Year
  Sex: Male
  Weight: 74 kg

DRUGS (2)
  1. VALPROATE SODIUM [Suspect]
     Active Substance: VALPROATE SODIUM
     Indication: Dementia with Lewy bodies
     Route: 048
     Dates: start: 20170802
  2. VALPROATE SODIUM [Suspect]
     Active Substance: VALPROATE SODIUM
     Dosage: DOSE INCREASED
     Route: 065

REACTIONS (16)
  - Aphasia [Unknown]
  - Glassy eyes [Unknown]
  - Fungal infection [Unknown]
  - Apnoeic attack [Recovered/Resolved]
  - Seborrhoea [Unknown]
  - Nasal obstruction [Unknown]
  - Swelling face [Unknown]
  - Eye infection [Recovered/Resolved]
  - Erythema [Unknown]
  - Hair colour changes [Unknown]
  - Respiration abnormal [Recovered/Resolved]
  - Eyelid function disorder [Unknown]
  - Hair texture abnormal [Unknown]
  - Decreased appetite [Unknown]
  - Hypotension [Unknown]
  - Lethargy [Unknown]

NARRATIVE: CASE EVENT DATE: 20170801
